FAERS Safety Report 10008147 (Version 2)
Quarter: 2014Q1

REPORT INFORMATION
  Report Type: Spontaneous
  Country: US (occurrence: US)
  Receive Date: 20140313
  Receipt Date: 20140313
  Transmission Date: 20141002
  Serious: No
  Sender: FDA-Public Use
  Company Number: US-GILEAD-2013-0072326

PATIENT
  Age: 76 Year
  Sex: Male

DRUGS (2)
  1. LETAIRIS [Suspect]
     Indication: PRODUCT USED FOR UNKNOWN INDICATION
     Dosage: UNK
     Dates: start: 201301
  2. LETAIRIS [Suspect]
     Dosage: 5 MG, UNK
     Dates: end: 201207

REACTIONS (3)
  - Rash pruritic [Not Recovered/Not Resolved]
  - Headache [Not Recovered/Not Resolved]
  - Oedema peripheral [Not Recovered/Not Resolved]
